FAERS Safety Report 12461793 (Version 2)
Quarter: 2016Q2

REPORT INFORMATION
  Report Type: Report from Study
  Country: US (occurrence: US)
  Receive Date: 20160613
  Receipt Date: 20160620
  Transmission Date: 20160815
  Serious: Yes (Hospitalization)
  Sender: FDA-Public Use
  Company Number: US-ACTELION-A-US2016-129939

PATIENT
  Age: 41 Year
  Sex: Female

DRUGS (3)
  1. OPSUMIT [Suspect]
     Active Substance: MACITENTAN
     Indication: PULMONARY HYPERTENSION
     Dosage: 10 MG, UNK
     Route: 048
     Dates: start: 20160113
  2. COUMADIN [Concomitant]
     Active Substance: WARFARIN SODIUM
  3. TREPROSTINIL DIOLAMIN [Concomitant]
     Active Substance: TREPROSTINIL DIOLAMINE
     Route: 048

REACTIONS (10)
  - Pneumonia [Unknown]
  - Chest discomfort [Unknown]
  - Muscle spasms [Unknown]
  - Nasopharyngitis [Unknown]
  - Dyspnoea [Unknown]
  - Eye swelling [Unknown]
  - Headache [Unknown]
  - Oropharyngeal pain [Unknown]
  - Peripheral swelling [Unknown]
  - Nasal congestion [Unknown]
